FAERS Safety Report 12567922 (Version 1)
Quarter: 2016Q3

REPORT INFORMATION
  Report Type: Spontaneous
  Country: US (occurrence: US)
  Receive Date: 20160718
  Receipt Date: 20160718
  Transmission Date: 20161109
  Serious: No
  Sender: FDA-Public Use
  Company Number: US-ASTELLAS-2016US010574

PATIENT
  Age: 71 Year
  Sex: Female

DRUGS (1)
  1. MYRBETRIQ [Suspect]
     Active Substance: MIRABEGRON
     Indication: POLLAKIURIA
     Route: 065

REACTIONS (6)
  - Abdominal discomfort [Unknown]
  - Drug ineffective [Unknown]
  - Cough [Unknown]
  - Nocturia [Not Recovered/Not Resolved]
  - Heart rate increased [Unknown]
  - Hot flush [Unknown]
